FAERS Safety Report 4492711-7 (Version None)
Quarter: 2004Q4

REPORT INFORMATION
  Report Type: 
  Country: None (occurrence: None)
  Receive Date: 20041104
  Receipt Date: 20040915
  Transmission Date: 20050328
  Serious: Yes (Death)
  Sender: FDA-Public Use
  Company Number: 200419552GDDC

PATIENT
  Age: 54 Year
  Sex: Female

DRUGS (3)
  1. LASIX [Suspect]
     Indication: HYPERTENSION
     Dosage: DOSE: 40-80 MG PER DAY
     Route: 048
     Dates: start: 20040301, end: 20040813
  2. IRBESARTAN [Concomitant]
     Indication: HYPERTENSION
     Route: 048
     Dates: start: 20020101
  3. ATENOLOL [Concomitant]
     Indication: HYPERTENSION
     Route: 048
     Dates: start: 20020101, end: 20020101

REACTIONS (3)
  - BLISTER [None]
  - CARDIAC FAILURE [None]
  - SEPSIS [None]
